FAERS Safety Report 6764057-5 (Version None)
Quarter: 2010Q2

REPORT INFORMATION
  Report Type: 
  Country: None (occurrence: None)
  Receive Date: 20100608
  Receipt Date: 20100525
  Transmission Date: 20101027
  Serious: Yes (Hospitalization)
  Sender: FDA-Public Use
  Company Number: 008422

PATIENT
  Sex: Male

DRUGS (7)
  1. KEPPRA [Suspect]
     Dosage: 500 MG, THREE DOSES TAKEN ORAL
     Route: 048
     Dates: start: 20100205, end: 20100206
  2. NIMOTOP (NIMOTOP) (NOT SPECIFIED) [Suspect]
     Dosage: (INTRAVENOUS (NOT OTHERWISE SPECIFIED)), ORAL
     Route: 048
     Dates: start: 20100205, end: 20100208
  3. NIMOTOP (NIMOTOP) (NOT SPECIFIED) [Suspect]
     Dosage: (INTRAVENOUS (NOT OTHERWISE SPECIFIED)), ORAL
     Route: 048
     Dates: start: 20100208, end: 20100212
  4. VISIPAQUE [Suspect]
     Dosage: (SINGLE USE INTRAVENOUS (NOT OTHERWISE SPECIFIED)
     Route: 042
     Dates: start: 20100205, end: 20100205
  5. IOMERON-150 [Suspect]
     Dosage: (SINGLE USE
     Dates: start: 20100205, end: 20100205
  6. PERFALGAN [Concomitant]
  7. HEPARIN [Concomitant]

REACTIONS (1)
  - ACUTE GENERALISED EXANTHEMATOUS PUSTULOSIS [None]
